FAERS Safety Report 8401198-0 (Version None)
Quarter: 2012Q2

REPORT INFORMATION
  Report Type: 
  Country: None (occurrence: None)
  Receive Date: 20120601
  Receipt Date: 20120524
  Transmission Date: 20120825
  Serious: Yes (Hospitalization)
  Sender: FDA-Public Use
  Company Number: PHEH2012US010836

PATIENT
  Sex: Male

DRUGS (4)
  1. BICALUTAMIDE [Concomitant]
     Dosage: 50 MG, UNK
  2. METOPROLOL TARTRATE [Concomitant]
     Dosage: 50 MG, UNK
  3. EXELON [Suspect]
     Dosage: 4.6 MG, DAILY
     Route: 062
  4. LEVOTHYROXINE SODIUM [Concomitant]
     Dosage: 25 MG, UNK

REACTIONS (5)
  - DISORIENTATION [None]
  - BACK INJURY [None]
  - ABNORMAL BEHAVIOUR [None]
  - FALL [None]
  - BRONCHITIS [None]
